FAERS Safety Report 7324609-0 (Version None)
Quarter: 2011Q1

REPORT INFORMATION
  Report Type: 
  Country: None (occurrence: None)
  Receive Date: 20110209
  Receipt Date: 20101221
  Transmission Date: 20110831
  Serious: No
  Sender: FDA-Public Use
  Company Number: 2010000093

PATIENT
  Age: 9 Year
  Sex: Female

DRUGS (2)
  1. ULESFIA [Suspect]
     Indication: LICE INFESTATION
     Dosage: TOPICAL
     Route: 061
     Dates: start: 20101115, end: 20100101
  2. GRIS-PEG [Suspect]
     Indication: TINEA CAPITIS
     Dates: start: 20101216

REACTIONS (3)
  - VOMITING [None]
  - TINEA CAPITIS [None]
  - ALOPECIA [None]
